FAERS Safety Report 8135978-6 (Version None)
Quarter: 2012Q1

REPORT INFORMATION
  Report Type: 
  Country: None (occurrence: None)
  Receive Date: 20120214
  Receipt Date: 20120209
  Transmission Date: 20120608
  Serious: Yes (Other)
  Sender: FDA-Public Use
  Company Number: CH-COVIDIEN/TYCO HEALTHCARE/MALLINCKRODT-T201200595

PATIENT
  Age: 65 Year
  Sex: Female

DRUGS (1)
  1. OPTIRAY 160 [Suspect]
     Indication: COMPUTERISED TOMOGRAM
     Dosage: 100 ML, SINGLE
     Route: 042
     Dates: start: 20120126, end: 20120126

REACTIONS (5)
  - TONGUE OEDEMA [None]
  - RASH ERYTHEMATOUS [None]
  - URTICARIA [None]
  - HYPERSENSITIVITY [None]
  - COUGH [None]
